FAERS Safety Report 6460118-9 (Version None)
Quarter: 2009Q4

REPORT INFORMATION
  Report Type: 
  Country: None (occurrence: None)
  Receive Date: 20091129
  Receipt Date: 20091123
  Transmission Date: 20100525
  Serious: Yes (Death)
  Sender: FDA-Public Use
  Company Number: PHEH2009US16664

PATIENT
  Sex: Female

DRUGS (5)
  1. GLEEVEC [Suspect]
     Indication: CHRONIC MYELOID LEUKAEMIA
     Dosage: 400 MG, QD
     Route: 048
     Dates: start: 20050901, end: 20091122
  2. ASPIRIN [Concomitant]
     Dosage: UNK, UNK
  3. LOVASTATIN [Concomitant]
     Dosage: UNK, UNK
  4. CENTRUM [Concomitant]
     Dosage: UNK, UNK
  5. BYSTOLIC [Concomitant]
     Dosage: UNK, UNK

REACTIONS (1)
  - DEATH [None]
